FAERS Safety Report 9165079 (Version 1)
Quarter: 2013Q1

REPORT INFORMATION
  Report Type: Spontaneous
  Country: US (occurrence: None)
  Receive Date: 20130313
  Receipt Date: 20130313
  Transmission Date: 20140127
  Serious: Yes (Other)
  Sender: FDA-Public Use
  Company Number: None

PATIENT
  Age: 42 Year
  Sex: Female
  Weight: 69.85 kg

DRUGS (1)
  1. MIRENA INTRAUTERINE SYSTEM [Suspect]
     Indication: DYSFUNCTIONAL UTERINE BLEEDING

REACTIONS (4)
  - Uterine spasm [None]
  - Uterine haemorrhage [None]
  - Clostridium test positive [None]
  - Culture positive [None]
